FAERS Safety Report 9635163 (Version 2)
Quarter: 2013Q4

REPORT INFORMATION
  Report Type: Spontaneous
  Country: FR (occurrence: FR)
  Receive Date: 20131021
  Receipt Date: 20131219
  Transmission Date: 20140711
  Serious: Yes (Hospitalization, Other)
  Sender: FDA-Public Use
  Company Number: FR-ASTRAZENECA-2013SE75915

PATIENT
  Age: 25 Year
  Sex: Female

DRUGS (7)
  1. DIPRIVAN [Suspect]
     Route: 042
     Dates: start: 20130323
  2. OCYTOCINE [Suspect]
     Route: 065
     Dates: start: 20130323
  3. NOVOSEVEN [Suspect]
     Indication: UTERINE HAEMORRHAGE
     Route: 065
     Dates: start: 20130323
  4. FIBRINOGENE HUMAIN [Suspect]
     Route: 065
     Dates: start: 20130323
  5. SUFENTANIL [Suspect]
     Route: 065
     Dates: start: 20130323
  6. NALADOR [Suspect]
     Route: 065
     Dates: start: 20130323
  7. EXACYL [Suspect]
     Route: 065
     Dates: start: 20130323

REACTIONS (5)
  - Renal failure acute [Recovered/Resolved]
  - Meningioma [Unknown]
  - Myocardial infarction [Unknown]
  - Partial seizures [Unknown]
  - Pancreatitis acute [Unknown]
